FAERS Safety Report 14379644 (Version 1)
Quarter: 2018Q1

REPORT INFORMATION
  Report Type: Spontaneous
  Country: US (occurrence: US)
  Receive Date: 20180111
  Receipt Date: 20180111
  Transmission Date: 20180509
  Serious: Yes (Hospitalization)
  Sender: FDA-Public Use
  Company Number: None

PATIENT
  Age: 13 Year
  Sex: Female
  Weight: 42.2 kg

DRUGS (8)
  1. METHOTREXATE. [Suspect]
     Active Substance: METHOTREXATE
     Dates: end: 20171226
  2. DOXORUBICIN HYDROCHLORIDE. [Suspect]
     Active Substance: DOXORUBICIN HYDROCHLORIDE
     Dates: end: 20171201
  3. ONCASPAR [Suspect]
     Active Substance: PEGASPARGASE
     Dates: end: 20180104
  4. CYTARABINE. [Suspect]
     Active Substance: CYTARABINE
     Dates: end: 20171229
  5. VINCRISTINE SULFATE. [Suspect]
     Active Substance: VINCRISTINE SULFATE
     Dates: end: 20180104
  6. THIOGUANINE (6-TG) [Suspect]
     Active Substance: THIOGUANINE ANHYDROUS
     Dates: end: 20180101
  7. CYCLOPHOSPHAMIDE. [Suspect]
     Active Substance: CYCLOPHOSPHAMIDE
     Dates: end: 20171218
  8. DEXAMETHASONE. [Suspect]
     Active Substance: DEXAMETHASONE
     Dates: end: 20171207

REACTIONS (10)
  - Heart rate increased [None]
  - Febrile neutropenia [None]
  - Muscular weakness [None]
  - Blood potassium decreased [None]
  - Dysarthria [None]
  - Acute kidney injury [None]
  - Panic attack [None]
  - Toxicity to various agents [None]
  - Hypertension [None]
  - Leukoencephalopathy [None]

NARRATIVE: CASE EVENT DATE: 20171231
